FAERS Safety Report 24970902 (Version 3)
Quarter: 2025Q4

REPORT INFORMATION
  Report Type: Spontaneous
  Country: GB (occurrence: GB)
  Receive Date: 20250214
  Receipt Date: 20251112
  Transmission Date: 20260118
  Serious: Yes (Congenital Anomaly, Other)
  Sender: BAXTER
  Company Number: None

PATIENT
  Age: 32 Year
  Sex: Female

DRUGS (12)
  1. CYCLOPHOSPHAMIDE [Suspect]
     Active Substance: CYCLOPHOSPHAMIDE
     Indication: Breast cancer in situ
     Dosage: 600MG/M2 IV GIVEN 3 WEEKLY 30.8.24, LAST DOSE 11.10.24
     Route: 065
     Dates: start: 20240830, end: 20241011
  2. METOCLOPRAMIDE [Suspect]
     Active Substance: METOCLOPRAMIDE
     Route: 065
  3. GOSERELIN [Suspect]
     Active Substance: GOSERELIN
     Indication: Breast cancer in situ
     Dosage: 3.6MG S/C 4 WEEKLY 20.9.24; LAST DOSE 10.1.25
     Route: 065
     Dates: start: 20240920, end: 20250110
  4. EPIRUBICIN [Suspect]
     Active Substance: EPIRUBICIN
     Indication: Breast cancer in situ
     Dosage: 90MG/M2 IV GIVEN 3 WEEKLY 30.8.24, LAST DOSE 11.10.24
     Route: 065
     Dates: start: 20240830, end: 20241011
  5. DOCETAXEL [Suspect]
     Active Substance: DOCETAXEL
     Indication: Breast cancer in situ
     Dosage: 100MG/M2 IV GIVEN 3 WEEKLY 1.11.24, LAST DOSE 27.12.24
     Route: 065
     Dates: start: 20241101
  6. ZOLEDRONIC ACID [Suspect]
     Active Substance: ZOLEDRONIC ACID
     Indication: Breast cancer in situ
     Dosage: 4MG IV GIVEN 6 WEEKLY 20.9.24, LAST DOSE 13.12.24
     Route: 065
     Dates: start: 20240920, end: 20241213
  7. LEVOFLOXACIN [Concomitant]
     Active Substance: LEVOFLOXACIN
     Dosage: UNK
     Route: 065
  8. Akynzeo [Concomitant]
     Dosage: UNK
     Route: 065
  9. FLUCONAZOLE [Concomitant]
     Active Substance: FLUCONAZOLE
     Dosage: UNK
     Route: 065
  10. DEXAMETHASONE [Concomitant]
     Active Substance: DEXAMETHASONE
     Dosage: UNK
     Route: 065
  11. GRANISETRON [Concomitant]
     Active Substance: GRANISETRON
     Dosage: UNK
     Route: 065
  12. FILGRASTIM [Concomitant]
     Active Substance: FILGRASTIM
     Dosage: UNK
     Route: 065

REACTIONS (2)
  - Ultrasound foetal abnormal [Unknown]
  - Maternal exposure during pregnancy [Unknown]
